FAERS Safety Report 9217757 (Version 2)
Quarter: 2013Q2

REPORT INFORMATION
  Report Type: Spontaneous
  Country: FR (occurrence: FR)
  Receive Date: 20130408
  Receipt Date: 20130418
  Transmission Date: 20140414
  Serious: Yes (Disabling)
  Sender: FDA-Public Use
  Company Number: FR-ROCHE-1210087

PATIENT
  Age: 68 Year
  Sex: Male

DRUGS (12)
  1. AVASTIN [Suspect]
     Indication: PRODUCT USED FOR UNKNOWN INDICATION
     Dosage: CYCLE 1
     Route: 042
     Dates: start: 20130204, end: 20130204
  2. AVASTIN [Suspect]
     Dosage: CYCLE 2
     Route: 065
     Dates: start: 20130218
  3. AVASTIN [Suspect]
     Dosage: CYCLE 3
     Route: 065
     Dates: end: 20130304
  4. OXALIPLATIN [Suspect]
     Indication: PRODUCT USED FOR UNKNOWN INDICATION
     Route: 042
     Dates: start: 20130204, end: 20130204
  5. OXALIPLATIN [Suspect]
     Route: 065
     Dates: start: 20130218
  6. OXALIPLATIN [Suspect]
     Dosage: CYCLE 3
     Route: 065
     Dates: end: 20130304
  7. FLUOROURACILE [Suspect]
     Indication: PRODUCT USED FOR UNKNOWN INDICATION
     Dosage: DAY 1: 796 MG AND DAY 2: 2388 MG
     Route: 042
     Dates: start: 20130204, end: 20130205
  8. FLUOROURACILE [Suspect]
     Dosage: DAY 1: 788 MG AND DAY 2: 2364 MG
     Route: 065
     Dates: start: 20130218
  9. FLUOROURACILE [Suspect]
     Dosage: CYCLE 3
     Route: 065
     Dates: end: 20130304
  10. LEVOFOLINATE [Suspect]
     Indication: PRODUCT USED FOR UNKNOWN INDICATION
     Route: 042
     Dates: start: 20130204, end: 20130204
  11. LEVOFOLINATE [Suspect]
     Route: 065
     Dates: start: 20130218
  12. LEVOFOLINATE [Suspect]
     Dosage: CYCLE 3
     Route: 065
     Dates: end: 20130304

REACTIONS (1)
  - Paraesthesia [Unknown]
